FAERS Safety Report 6029106-0 (Version None)
Quarter: 2009Q1

REPORT INFORMATION
  Report Type: 
  Country: None (occurrence: None)
  Receive Date: 20090102
  Receipt Date: 20081219
  Transmission Date: 20090719
  Serious: Yes (Life-Threatening)
  Sender: FDA-Public Use
  Company Number: 2008-04813

PATIENT
  Age: 75 Year
  Sex: Male
  Weight: 61 kg

DRUGS (3)
  1. VELCADE [Suspect]
     Indication: MULTIPLE MYELOMA
     Dosage: INTRAVENOUS
     Route: 042
     Dates: start: 20081203, end: 20081213
  2. DEXAMETHASONE TAB [Concomitant]
  3. SODIUM BICARBONATE [Concomitant]

REACTIONS (2)
  - PERICARDIAL EFFUSION [None]
  - PULMONARY OEDEMA [None]
